FAERS Safety Report 16709211 (Version 2)
Quarter: 2019Q3

REPORT INFORMATION
  Report Type: Report from Study
  Country: CO (occurrence: CO)
  Receive Date: 20190816
  Receipt Date: 20190830
  Transmission Date: 20191004
  Serious: Yes (Hospitalization)
  Sender: FDA-Public Use
  Company Number: PHHY2019CO181702

PATIENT
  Sex: Female
  Weight: 50 kg

DRUGS (2)
  1. KISQALI [Suspect]
     Active Substance: RIBOCICLIB
     Dosage: 400 MG, QD
     Route: 048
  2. KISQALI [Suspect]
     Active Substance: RIBOCICLIB
     Indication: BREAST CANCER METASTATIC
     Dosage: 600 MG, QD
     Route: 048
     Dates: start: 20190504

REACTIONS (13)
  - Dermatitis [Not Recovered/Not Resolved]
  - Ocular hyperaemia [Recovering/Resolving]
  - Rash [Recovering/Resolving]
  - Dry skin [Not Recovered/Not Resolved]
  - Weight decreased [Unknown]
  - Swelling face [Not Recovered/Not Resolved]
  - Vision blurred [Not Recovered/Not Resolved]
  - Lacrimation increased [Recovering/Resolving]
  - Inflammation [Recovering/Resolving]
  - Visual impairment [Not Recovered/Not Resolved]
  - Dry eye [Not Recovered/Not Resolved]
  - Hypersensitivity [Recovered/Resolved]
  - Eye swelling [Recovering/Resolving]
